FAERS Safety Report 19437821 (Version 2)
Quarter: 2021Q2

REPORT INFORMATION
  Report Type: Report from Study
  Country: None (occurrence: FR)
  Receive Date: 20210618
  Receipt Date: 20210622
  Transmission Date: 20210717
  Serious: Yes (Other)
  Sender: FDA-Public Use
  Company Number: FR-ABBVIE-21P-056-3957058-00

PATIENT
  Age: 51 Year
  Sex: Male
  Weight: 78 kg

DRUGS (2)
  1. UPADACITINIB [Suspect]
     Active Substance: UPADACITINIB
     Indication: DERMATITIS ATOPIC
     Route: 048
     Dates: start: 20210317, end: 20210603
  2. NERISONE CREAM [Concomitant]
     Indication: PRODUCT USED FOR UNKNOWN INDICATION
     Route: 003
     Dates: end: 20210603

REACTIONS (1)
  - Herpes virus infection [Not Recovered/Not Resolved]

NARRATIVE: CASE EVENT DATE: 20210523
